FAERS Safety Report 7402060-2 (Version None)
Quarter: 2011Q2

REPORT INFORMATION
  Report Type: 
  Country: None (occurrence: None)
  Receive Date: 20110408
  Receipt Date: 20101105
  Transmission Date: 20111010
  Serious: Yes (Hospitalization)
  Sender: FDA-Public Use
  Company Number: US-BAYER-201034628NA

PATIENT
  Age: 29 Year
  Sex: Female
  Weight: 112.2 kg

DRUGS (3)
  1. YASMIN [Suspect]
     Indication: CONTRACEPTION
     Dosage: UNK
     Dates: start: 20040301, end: 20050401
  2. YASMIN [Suspect]
     Indication: MENSTRUAL DISORDER
     Dosage: UNK
     Dates: start: 20060601, end: 20060601
  3. YASMIN [Suspect]
     Dosage: UNK
     Dates: start: 20061001, end: 20070101

REACTIONS (1)
  - CHOLECYSTITIS ACUTE [None]
